FAERS Safety Report 10867407 (Version 1)
Quarter: 2015Q1

REPORT INFORMATION
  Report Type: Spontaneous
  Country: DK (occurrence: DK)
  Receive Date: 20150225
  Receipt Date: 20150225
  Transmission Date: 20150721
  Serious: Yes (Congenital Anomaly, Other)
  Sender: FDA-Public Use
  Company Number: DK-JNJFOC-20150213205

PATIENT

DRUGS (2)
  1. METHYLPHENIDATE HYDROCHLORIDE. [Suspect]
     Active Substance: METHYLPHENIDATE HYDROCHLORIDE
     Indication: ATTENTION DEFICIT/HYPERACTIVITY DISORDER
     Route: 064
  2. ATOMOXETINE [Suspect]
     Active Substance: ATOMOXETINE
     Indication: ATTENTION DEFICIT/HYPERACTIVITY DISORDER
     Route: 064

REACTIONS (6)
  - Foetal exposure during pregnancy [Recovered/Resolved]
  - Apgar score low [Unknown]
  - Congenital anomaly [Unknown]
  - Premature baby [Unknown]
  - Low birth weight baby [Unknown]
  - Small for dates baby [Unknown]
